FAERS Safety Report 5429648-2 (Version None)
Quarter: 2007Q3

REPORT INFORMATION
  Report Type: 
  Country: None (occurrence: None)
  Receive Date: 20070829
  Receipt Date: 20070806
  Transmission Date: 20080115
  Serious: Yes (Life-Threatening, Hospitalization, Congenital Anomaly)
  Sender: FDA-Public Use
  Company Number: AU-SHR-AU-2007-025102

PATIENT
  Age: 41 Year
  Sex: Female
  Weight: 102 kg

DRUGS (5)
  1. BETAFERON [Suspect]
     Dosage: 250 A?G, EVERY 2D
     Route: 058
     Dates: start: 20061206
  2. METFORMIN [Concomitant]
  3. SERETIDE [Concomitant]
  4. VENTOLIN [Concomitant]
  5. TEGRETOL [Concomitant]

REACTIONS (3)
  - ANGINA PECTORIS [None]
  - CORONARY ARTERY DISEASE [None]
  - INFLUENZA LIKE ILLNESS [None]
